FAERS Safety Report 9752157 (Version 1)
Quarter: 2013Q4

REPORT INFORMATION
  Report Type: Spontaneous
  Country: US (occurrence: None)
  Receive Date: 20131211
  Receipt Date: 20131211
  Transmission Date: 20140711
  Serious: No
  Sender: FDA-Public Use
  Company Number: None

PATIENT
  Age: 65 Year
  Sex: Female

DRUGS (1)
  1. POMALIDOMIDE [Suspect]
     Indication: PLASMA CELL MYELOMA
     Dates: start: 201302

REACTIONS (1)
  - Pneumonia [None]
